FAERS Safety Report 25918095 (Version 1)
Quarter: 2025Q4

REPORT INFORMATION
  Report Type: Other
  Country: GB (occurrence: GB)
  Receive Date: 20251014
  Receipt Date: 20251014
  Transmission Date: 20260118
  Serious: Yes (Other)
  Sender: STRIDES
  Company Number: None

PATIENT
  Age: 79 Year
  Sex: Female
  Weight: 59 kg

DRUGS (1)
  1. PREDNISONE [Suspect]
     Active Substance: PREDNISONE
     Indication: Polymyalgia rheumatica
     Dosage: 2.5 X 2 =5
     Route: 065
     Dates: end: 20250930

REACTIONS (6)
  - Faeces pale [Unknown]
  - Nausea [Recovering/Resolving]
  - Frequent bowel movements [Recovering/Resolving]
  - Dizziness [Not Recovered/Not Resolved]
  - Pollakiuria [Recovering/Resolving]
  - Abdominal distension [Unknown]
